FAERS Safety Report 13931537 (Version 3)
Quarter: 2017Q4

REPORT INFORMATION
  Report Type: Report from Study
  Country: BR (occurrence: BR)
  Receive Date: 20170904
  Receipt Date: 20171212
  Transmission Date: 20180320
  Serious: Yes (Other)
  Sender: FDA-Public Use
  Company Number: BR-ROCHE-1985689

PATIENT

DRUGS (1)
  1. ALTEPLASE. [Suspect]
     Active Substance: ALTEPLASE
     Indication: ISCHAEMIC STROKE
     Dosage: 0.9 MG / KG, 10 % OF THE REMAINING BOLUS DOSE CONTINUOUS INFUSION OVER 1 HOUR TO A MAXIMUM DOSE OF 9
     Route: 042

REACTIONS (1)
  - Haemorrhage intracranial [Unknown]
